FAERS Safety Report 9614478 (Version 1)
Quarter: 2013Q4

REPORT INFORMATION
  Report Type: Spontaneous
  Country: FR (occurrence: FR)
  Receive Date: 20131011
  Receipt Date: 20131011
  Transmission Date: 20140711
  Serious: Yes (Hospitalization)
  Sender: FDA-Public Use
  Company Number: FR-PFIZER INC-2013291197

PATIENT
  Age: 91 Year
  Sex: Male

DRUGS (5)
  1. CORDARONE [Suspect]
     Indication: ATRIAL FIBRILLATION
     Dosage: 200 MG, 1X/DAY
     Route: 048
     Dates: start: 2010
  2. IKOREL [Concomitant]
  3. KARDEGIC [Concomitant]
  4. MOVICOL [Concomitant]
  5. SPECIAFOLDINE [Concomitant]

REACTIONS (2)
  - Hypothyroidism [Recovered/Resolved]
  - Infection [Unknown]
